FAERS Safety Report 6603534-4 (Version None)
Quarter: 2010Q1

REPORT INFORMATION
  Report Type: 
  Country: None (occurrence: None)
  Receive Date: 20100226
  Receipt Date: 20090917
  Transmission Date: 20100710
  Serious: No
  Sender: FDA-Public Use
  Company Number: A0806367A

PATIENT
  Age: 45 Year
  Sex: Female

DRUGS (5)
  1. AMOXICILLIN AND CLAVULANATE POTASSIUM [Suspect]
     Indication: SINUSITIS
     Dosage: 875MG TWICE PER DAY
     Route: 048
     Dates: start: 20090521, end: 20090531
  2. VALTREX [Suspect]
     Indication: EAR PAIN
     Dosage: 500MG TWICE PER DAY
     Route: 048
     Dates: start: 20090601, end: 20090601
  3. PREDNISONE TAB [Concomitant]
  4. ZITHROMAX [Concomitant]
  5. METHYLPREDNISOLONE 4MG TAB [Concomitant]

REACTIONS (3)
  - DRUG INEFFECTIVE [None]
  - EAR PAIN [None]
  - HEADACHE [None]
